FAERS Safety Report 12326193 (Version 1)
Quarter: 2016Q2

REPORT INFORMATION
  Report Type: Spontaneous
  Country: US (occurrence: None)
  Receive Date: 20160502
  Receipt Date: 20160502
  Transmission Date: 20160815
  Serious: Yes (Disabling, Other)
  Sender: FDA-Public Use
  Company Number: None

PATIENT
  Age: 37 Year
  Sex: Female
  Weight: 117.94 kg

DRUGS (15)
  1. TOPAMAX [Suspect]
     Active Substance: TOPIRAMATE
     Indication: PROPHYLAXIS
     Dosage: IN THE MORNING TAKEN BY MOUTH
     Route: 048
     Dates: start: 20151231, end: 20160408
  2. SINGULAIR [Concomitant]
     Active Substance: MONTELUKAST SODIUM
  3. PREDNIONE [Concomitant]
  4. MAXALT [Concomitant]
     Active Substance: RIZATRIPTAN BENZOATE
  5. TRAZODONE [Concomitant]
     Active Substance: TRAZODONE HYDROCHLORIDE
  6. ACETAMINOPHEN AND CODEINE [Concomitant]
     Active Substance: ACETAMINOPHEN\CODEINE PHOSPHATE
  7. FALLIC ACID [Concomitant]
  8. TRIVORA [Concomitant]
     Active Substance: ETHINYL ESTRADIOL\LEVONORGESTREL
  9. METHACARBINOL [Concomitant]
  10. OXYBUTYNIN [Concomitant]
     Active Substance: OXYBUTYNIN
  11. VENTALIN FHA [Concomitant]
  12. ALBUTEROL SULFATE. [Concomitant]
     Active Substance: ALBUTEROL SULFATE
  13. ADVAIR DISCUS [Concomitant]
  14. BUTAL/APAP/CAFFEINE [Concomitant]
  15. TOPAMAX [Suspect]
     Active Substance: TOPIRAMATE
     Indication: MIGRAINE
     Dosage: IN THE MORNING TAKEN BY MOUTH
     Route: 048
     Dates: start: 20151231, end: 20160408

REACTIONS (1)
  - Mood swings [None]

NARRATIVE: CASE EVENT DATE: 20160212
